FAERS Safety Report 4584289-4 (Version None)
Quarter: 2005Q1

REPORT INFORMATION
  Report Type: 
  Country: None (occurrence: None)
  Receive Date: 20050216
  Receipt Date: 20040623
  Transmission Date: 20050727
  Serious: Yes (Hospitalization)
  Sender: FDA-Public Use
  Company Number: PHEH2004US06862

PATIENT
  Age: 41 Year
  Sex: Male
  Weight: 86 kg

DRUGS (3)
  1. LISINOPRIL [Concomitant]
  2. HYDROCHLOROTHIAZIDE [Suspect]
  3. LOTREL [Suspect]
     Indication: HYPERTENSION
     Dosage: 5 MG AMLOD/10 MG BENAZ QD
     Dates: start: 20040420, end: 20040520

REACTIONS (1)
  - ANAEMIA HAEMOLYTIC AUTOIMMUNE [None]
